FAERS Safety Report 7276103-3 (Version None)
Quarter: 2011Q1

REPORT INFORMATION
  Report Type: 
  Country: None (occurrence: None)
  Receive Date: 20110131
  Receipt Date: 20110120
  Transmission Date: 20110831
  Serious: Yes (Other)
  Sender: FDA-Public Use
  Company Number: CL-286-2011

PATIENT
  Age: 51 Year
  Sex: Female

DRUGS (4)
  1. ZOPICLONE [Concomitant]
  2. METRONIDAZOLE [Suspect]
     Indication: TOOTH ABSCESS
     Dosage: 40MG TDS ORAL USE
     Route: 048
     Dates: start: 20101022, end: 20101230
  3. CITALOPRAM [Concomitant]
  4. CHLORHEXIDINE GLUCONATE [Concomitant]

REACTIONS (4)
  - ANXIETY [None]
  - CONDITION AGGRAVATED [None]
  - PSYCHOTIC DISORDER [None]
  - INSOMNIA [None]
